FAERS Safety Report 6046562-2 (Version None)
Quarter: 2009Q1

REPORT INFORMATION
  Report Type: 
  Country: None (occurrence: None)
  Receive Date: 20090122
  Receipt Date: 20090112
  Transmission Date: 20090719
  Serious: Yes (Hospitalization, Other)
  Sender: FDA-Public Use
  Company Number: PHFR2008IE01069

PATIENT
  Sex: Male

DRUGS (4)
  1. CLOZARIL [Suspect]
     Indication: SCHIZOPHRENIA
     Dosage: 350 MG DAILY
     Route: 048
     Dates: start: 19940901
  2. CITALOPRAM [Concomitant]
     Indication: DEPRESSED MOOD
     Dosage: 40 MG DAILY
     Dates: start: 20060101
  3. HYOSCINE [Concomitant]
     Dosage: 300 MCG
  4. OLANZAPINE [Concomitant]

REACTIONS (9)
  - COMBINED IMMUNODEFICIENCY [None]
  - GENERAL PHYSICAL CONDITION ABNORMAL [None]
  - HEADACHE [None]
  - HYPOGAMMAGLOBULINAEMIA [None]
  - LEUKOPENIA [None]
  - LOWER RESPIRATORY TRACT INFECTION [None]
  - MENTAL DISORDER [None]
  - NEUTROPENIA [None]
  - PNEUMONIA [None]
